FAERS Safety Report 16712205 (Version 8)
Quarter: 2019Q4

REPORT INFORMATION
  Report Type: Report from Study
  Country: US (occurrence: US)
  Receive Date: 20190816
  Receipt Date: 20191119
  Transmission Date: 20200122
  Serious: Yes (Hospitalization, Other)
  Sender: FDA-Public Use
  Company Number: US-GILEAD-2019-0419183

PATIENT
  Age: 72 Year
  Sex: Female

DRUGS (8)
  1. AMBRISENTAN [Suspect]
     Active Substance: AMBRISENTAN
     Indication: PRODUCT USED FOR UNKNOWN INDICATION
     Dosage: 10 MG, QD
     Route: 048
     Dates: start: 20190226
  2. DILTIAZEM. [Concomitant]
     Active Substance: DILTIAZEM
  3. ADEMPAS [Concomitant]
     Active Substance: RIOCIGUAT
     Dosage: 2 MG
     Dates: start: 20190805
  4. ADEMPAS [Concomitant]
     Active Substance: RIOCIGUAT
     Dosage: 1.5 UNK
     Route: 048
  5. ADEMPAS [Concomitant]
     Active Substance: RIOCIGUAT
     Dosage: UNK
  6. OXYGEN. [Concomitant]
     Active Substance: OXYGEN
  7. ELIQUIS [Concomitant]
     Active Substance: APIXABAN
  8. UPTRAVI [Concomitant]
     Active Substance: SELEXIPAG

REACTIONS (28)
  - Contusion [Not Recovered/Not Resolved]
  - Haematoma [Unknown]
  - Pyrexia [Not Recovered/Not Resolved]
  - Pollakiuria [Unknown]
  - Dizziness [Recovered/Resolved]
  - Anaemia [Not Recovered/Not Resolved]
  - Campylobacter infection [Unknown]
  - Erythema [Not Recovered/Not Resolved]
  - Bladder spasm [Unknown]
  - Constipation [Unknown]
  - Fall [Recovered/Resolved]
  - Decreased activity [Not Recovered/Not Resolved]
  - Dyspepsia [Unknown]
  - Dyspnoea [Recovering/Resolving]
  - Oedema peripheral [Recovered/Resolved]
  - Cystitis haemorrhagic [Unknown]
  - Heart rate increased [Recovered/Resolved]
  - Oedema [Recovered/Resolved]
  - Fatigue [Not Recovered/Not Resolved]
  - Diarrhoea [Not Recovered/Not Resolved]
  - Epistaxis [Recovered/Resolved]
  - Haematuria [Unknown]
  - Restless legs syndrome [Not Recovered/Not Resolved]
  - Cough [Unknown]
  - Dyspnoea exertional [Recovering/Resolving]
  - Pyrexia [Recovered/Resolved]
  - Asthenia [Not Recovered/Not Resolved]
  - Haemoglobin decreased [Not Recovered/Not Resolved]

NARRATIVE: CASE EVENT DATE: 201907
